FAERS Safety Report 6805702-5 (Version None)
Quarter: 2010Q2

REPORT INFORMATION
  Report Type: 
  Country: None (occurrence: None)
  Receive Date: 20100628
  Receipt Date: 20080712
  Transmission Date: 20101027
  Serious: No
  Sender: FDA-Public Use
  Company Number: US-PFIZER INC-2008051589

PATIENT
  Sex: Female

DRUGS (5)
  1. SUTENT [Suspect]
     Indication: NEOPLASM MALIGNANT
     Dates: start: 20080516
  2. GLIPIZIDE [Concomitant]
  3. VITAMINS [Concomitant]
  4. TEA, GREEN [Concomitant]
  5. OTHER HYPNOTICS AND SEDATIVES [Concomitant]

REACTIONS (14)
  - ARTHRALGIA [None]
  - CONSTIPATION [None]
  - CONTUSION [None]
  - COUGH [None]
  - FLATULENCE [None]
  - GLOSSODYNIA [None]
  - LIP BLISTER [None]
  - NAUSEA [None]
  - PAIN [None]
  - PLATELET COUNT DECREASED [None]
  - SKIN FISSURES [None]
  - STOMATITIS [None]
  - VOMITING [None]
  - WEIGHT DECREASED [None]
